FAERS Safety Report 5044236-8 (Version None)
Quarter: 2006Q2

REPORT INFORMATION
  Report Type: 
  Country: None (occurrence: None)
  Receive Date: 20060629
  Receipt Date: 20060619
  Transmission Date: 20061013
  Serious: Yes (Hospitalization)
  Sender: FDA-Public Use
  Company Number: GXKR2006US03462

PATIENT
  Age: 60 Year
  Sex: Male
  Weight: 94 kg

DRUGS (15)
  1. TICLOPIDINE (NGX)(TICLOPIDINE) [Suspect]
     Indication: PLATELET AGGREGATION INHIBITION
     Dosage: 250 MG, BID, ORAL
     Route: 048
  2. CLOPIDOGREL [Suspect]
     Indication: PLATELET AGGREGATION INHIBITION
     Dosage: SEE IMAGE
  3. ASPIRIN [Concomitant]
  4. METOPROLOL (METOPROLOL) [Concomitant]
  5. GLIMEPIRIDE [Concomitant]
  6. METFORMIN [Concomitant]
  7. ATENOLOL [Concomitant]
  8. RAMIPRIL [Concomitant]
  9. ISOSORBIDE DINITRATE [Concomitant]
  10. AMLODIPINE [Concomitant]
  11. DOCUSATE SODIUM (DOCUSATE SODIUM) [Concomitant]
  12. FOSINOPRIL SODIUM [Concomitant]
  13. INSULIN [Concomitant]
  14. EPTIFIBATIDE (EPTIFIBATIDE) [Concomitant]
  15. CILOSTAZOL [Concomitant]

REACTIONS (8)
  - ACUTE CORONARY SYNDROME [None]
  - DRUG HYPERSENSITIVITY [None]
  - ELECTROCARDIOGRAM CHANGE [None]
  - HYPERHIDROSIS [None]
  - RASH MACULO-PAPULAR [None]
  - RASH PRURITIC [None]
  - STENT OCCLUSION [None]
  - THROMBOSIS IN DEVICE [None]
